FAERS Safety Report 21763691 (Version 3)
Quarter: 2023Q1

REPORT INFORMATION
  Report Type: Spontaneous
  Country: ES (occurrence: ES)
  Receive Date: 20221222
  Receipt Date: 20230224
  Transmission Date: 20230417
  Serious: Yes (Hospitalization)
  Sender: FDA-Public Use
  Company Number: ES-drreddys-LIT/SPN/22/0157819

PATIENT
  Age: 75 Year
  Sex: Female

DRUGS (3)
  1. BENDAMUSTINE [Suspect]
     Active Substance: BENDAMUSTINE
     Indication: Follicular lymphoma
     Dosage: SIX CYCLES
  2. RITUXIMAB [Suspect]
     Active Substance: RITUXIMAB
     Indication: Follicular lymphoma
     Dosage: MAINTENANCE DOSE
  3. RITUXIMAB [Suspect]
     Active Substance: RITUXIMAB
     Dosage: SIX CYCLES

REACTIONS (3)
  - COVID-19 [Unknown]
  - COVID-19 [Unknown]
  - Pneumonia viral [Unknown]
